FAERS Safety Report 8069925-2 (Version None)
Quarter: 2012Q1

REPORT INFORMATION
  Report Type: 
  Country: None (occurrence: None)
  Receive Date: 20120125
  Receipt Date: 20120125
  Transmission Date: 20120608
  Serious: Yes (Life-Threatening, Hospitalization)
  Sender: FDA-Public Use
  Company Number: None

PATIENT
  Age: 40 Year
  Sex: Male
  Weight: 74.842 kg

DRUGS (1)
  1. PRADAXA [Suspect]
     Indication: ANTIPHOSPHOLIPID SYNDROME
     Dosage: 150MG
     Route: 048
     Dates: start: 20111015, end: 20111228

REACTIONS (2)
  - CARDIAC VALVE VEGETATION [None]
  - CEREBROVASCULAR ACCIDENT [None]
